FAERS Safety Report 5587032-5 (Version None)
Quarter: 2008Q1

REPORT INFORMATION
  Report Type: 
  Country: None (occurrence: None)
  Receive Date: 20080110
  Receipt Date: 20080103
  Transmission Date: 20080703
  Serious: Yes (Other)
  Sender: FDA-Public Use
  Company Number: B0359804A

PATIENT
  Sex: Female

DRUGS (4)
  1. SEROXAT [Suspect]
     Route: 065
     Dates: start: 19980526
  2. DIAZEPAM [Concomitant]
     Route: 065
     Dates: start: 20000919
  3. LUSTRAL [Concomitant]
     Route: 065
     Dates: start: 20010411
  4. DULOXETINE [Concomitant]
     Route: 065

REACTIONS (8)
  - ABNORMAL BEHAVIOUR [None]
  - AGGRESSION [None]
  - DEPRESSED MOOD [None]
  - FATIGUE [None]
  - NERVOUSNESS [None]
  - SELF-INJURIOUS IDEATION [None]
  - SUICIDAL IDEATION [None]
  - WITHDRAWAL SYNDROME [None]
